FAERS Safety Report 9141925 (Version 2)
Quarter: 2013Q2

REPORT INFORMATION
  Report Type: Spontaneous
  Country: US (occurrence: US)
  Receive Date: 20130305
  Receipt Date: 20130404
  Transmission Date: 20140414
  Serious: No
  Sender: FDA-Public Use
  Company Number: US-AMGEN-USASP2013011745

PATIENT
  Age: 13 Year
  Sex: Male
  Weight: 63.49 kg

DRUGS (2)
  1. ENBREL [Suspect]
     Indication: LEUKOCYTE ANTIGEN B-27 POSITIVE
     Dosage: 50 MG, Q7D
     Dates: start: 201209
  2. CELEBREX [Concomitant]
     Indication: LEUKOCYTE ANTIGEN B-27 POSITIVE
     Dosage: 200 MG, DAILY

REACTIONS (1)
  - Injection site pain [Unknown]
